FAERS Safety Report 19783438 (Version 1)
Quarter: 2021Q3

REPORT INFORMATION
  Report Type: Spontaneous
  Country: FR (occurrence: FR)
  Receive Date: 20210903
  Receipt Date: 20210903
  Transmission Date: 20211014
  Serious: Yes (Death, Life-Threatening)
  Sender: FDA-Public Use
  Company Number: FR-ORION CORPORATION ORION PHARMA-TREX2021-0061

PATIENT
  Age: 80 Year
  Sex: Female

DRUGS (1)
  1. METHOTREXATE (TRADE NAME UNKNOWN) [Suspect]
     Active Substance: METHOTREXATE
     Indication: RHEUMATOID ARTHRITIS
     Dosage: EVERY DAY
     Route: 048
     Dates: start: 20210604, end: 20210615

REACTIONS (14)
  - Pyrexia [Fatal]
  - Acute pulmonary oedema [Unknown]
  - Atrial fibrillation [Unknown]
  - Ecchymosis [Unknown]
  - Overdose [Unknown]
  - Decreased appetite [Unknown]
  - Product use issue [Unknown]
  - Leukopenia [Fatal]
  - Agranulocytosis [Fatal]
  - Thrombocytopenia [Fatal]
  - Sepsis [Fatal]
  - Dehydration [Unknown]
  - Mucosal inflammation [Not Recovered/Not Resolved]
  - Fatigue [Unknown]

NARRATIVE: CASE EVENT DATE: 20210604
